FAERS Safety Report 17737156 (Version 1)
Quarter: 2020Q2

REPORT INFORMATION
  Report Type: Report from Study
  Country: DE (occurrence: DE)
  Receive Date: 20200502
  Receipt Date: 20200502
  Transmission Date: 20200714
  Serious: Yes (Hospitalization)
  Sender: FDA-Public Use
  Company Number: DE-TEVA-2020-DE-1228662

PATIENT
  Age: 72 Year
  Sex: Male
  Weight: 71 kg

DRUGS (12)
  1. AVASTIN [Suspect]
     Active Substance: BEVACIZUMAB
     Indication: OVARIAN CANCER
     Dosage: 1065 MG
     Route: 042
     Dates: start: 20130814, end: 20130814
  2. AVASTIN [Suspect]
     Active Substance: BEVACIZUMAB
     Dosage: 1080  MG
     Route: 042
     Dates: start: 20131017
  3. CARBOPLATIN. [Suspect]
     Active Substance: CARBOPLATIN
     Indication: OVARIAN CANCER
     Dosage: 435.5 MG
     Route: 042
     Dates: start: 20130904, end: 20130904
  4. PACLITAXEL. [Concomitant]
     Active Substance: PACLITAXEL
     Indication: OVARIAN CANCER
     Dosage: 254.8 MG
     Route: 065
     Dates: start: 20130925, end: 20130925
  5. PACLITAXEL. [Concomitant]
     Active Substance: PACLITAXEL
     Dosage: 316.75  MG
     Route: 065
     Dates: start: 20130724, end: 20130724
  6. CARBOPLATIN. [Suspect]
     Active Substance: CARBOPLATIN
     Dosage: 454.7 MG
     Route: 042
     Dates: start: 20130925, end: 20130925
  7. CARBOPLATIN. [Suspect]
     Active Substance: CARBOPLATIN
     Dosage: 409   MG
     Route: 042
     Dates: start: 20131107, end: 20131107
  8. PACLITAXEL. [Concomitant]
     Active Substance: PACLITAXEL
     Dosage: 318.5 MG
     Route: 065
     Dates: start: 20130904, end: 20130904
  9. PACLITAXEL. [Concomitant]
     Active Substance: PACLITAXEL
     Dosage: 316.8 MG
     Route: 065
     Dates: start: 20130814, end: 20130814
  10. CARBOPLATIN. [Suspect]
     Active Substance: CARBOPLATIN
     Dosage: 435  MG
     Route: 042
     Dates: start: 20131017, end: 20131017
  11. CARBOPLATIN. [Suspect]
     Active Substance: CARBOPLATIN
     Dosage: 457 MG
     Route: 042
     Dates: start: 20130724, end: 20130724
  12. CARBOPLATIN. [Suspect]
     Active Substance: CARBOPLATIN
     Dosage: 421.7  MG
     Route: 042
     Dates: start: 20130814, end: 20130814

REACTIONS (1)
  - Abdominal pain [Recovered/Resolved]

NARRATIVE: CASE EVENT DATE: 20131020
